FAERS Safety Report 7247119-8 (Version None)
Quarter: 2011Q1

REPORT INFORMATION
  Report Type: 
  Country: None (occurrence: None)
  Receive Date: 20110127
  Receipt Date: 20100712
  Transmission Date: 20110831
  Serious: No
  Sender: FDA-Public Use
  Company Number: US-BAUSCH-2010BL003856

PATIENT
  Age: 55 Year
  Sex: Female

DRUGS (3)
  1. REFRESH [Concomitant]
     Indication: PRODUCT USED FOR UNKNOWN INDICATION
     Route: 047
  2. ALAWAY [Suspect]
     Indication: EYE PRURITUS
     Route: 047
     Dates: start: 20100711, end: 20100711
  3. ALAWAY [Suspect]
     Indication: DRY EYE
     Route: 047
     Dates: start: 20100711, end: 20100711

REACTIONS (1)
  - INSTILLATION SITE PAIN [None]
